FAERS Safety Report 9889162 (Version 1)
Quarter: 2014Q1

REPORT INFORMATION
  Report Type: Spontaneous
  Country: BR (occurrence: BR)
  Receive Date: 20140211
  Receipt Date: 20140211
  Transmission Date: 20141002
  Serious: Yes (Other)
  Sender: FDA-Public Use
  Company Number: BR-ELI_LILLY_AND_COMPANY-BR201401011606

PATIENT
  Age: 67 Year
  Sex: Female
  Weight: 76 kg

DRUGS (12)
  1. HUMULIN N [Suspect]
     Indication: TYPE 2 DIABETES MELLITUS
     Dosage: 22 IU, QD
     Route: 058
     Dates: start: 2009
  2. HUMULIN N [Suspect]
     Dosage: 10 IU, QD
     Route: 058
     Dates: start: 2009
  3. HUMULIN R [Suspect]
     Indication: TYPE 2 DIABETES MELLITUS
     Dosage: 4 IU, BID
     Route: 058
  4. NOVOLIN N [Suspect]
     Indication: TYPE 2 DIABETES MELLITUS
     Dosage: 22 IU, QD
     Route: 058
     Dates: start: 2009
  5. NOVOLIN N [Suspect]
     Dosage: 10 IU, QD
     Route: 058
     Dates: start: 2009
  6. NOVOLIN R [Suspect]
     Indication: TYPE 2 DIABETES MELLITUS
     Dosage: 4 IU, BID
     Route: 058
  7. METFORMIN [Concomitant]
     Indication: PRODUCT USED FOR UNKNOWN INDICATION
     Dosage: 1 DF, BID
     Route: 065
  8. SIMVASTATIN [Concomitant]
     Indication: BLOOD CHOLESTEROL INCREASED
     Dosage: 20 MG, QD
     Route: 065
  9. AAS [Concomitant]
     Indication: BLOOD DISORDER
     Dosage: UNK, UNKNOWN
     Route: 065
  10. LOSARTAN POTASSIUM [Concomitant]
     Indication: BLOOD PRESSURE INCREASED
     Dosage: 1 DF, QD
     Route: 065
  11. LOSARTAN POTASSIUM [Concomitant]
     Dosage: 1 DF, BID
     Route: 065
  12. HYDROCHLOROTHIAZIDE [Concomitant]
     Indication: BLOOD PRESSURE INCREASED
     Dosage: 12.5 MG, QD
     Route: 065

REACTIONS (7)
  - Fall [Unknown]
  - Lower limb fracture [Unknown]
  - Diarrhoea [Unknown]
  - Blood glucose increased [Unknown]
  - Visual impairment [Unknown]
  - Mouth haemorrhage [Unknown]
  - Weight increased [Unknown]
